FAERS Safety Report 7615727-8 (Version None)
Quarter: 2011Q3

REPORT INFORMATION
  Report Type: 
  Country: None (occurrence: None)
  Receive Date: 20110711
  Receipt Date: 20110705
  Transmission Date: 20111222
  Serious: Yes (Other)
  Sender: FDA-Public Use
  Company Number: AE-711-207

PATIENT
  Age: 83 Year
  Sex: Female
  Weight: 68.9014 kg

DRUGS (7)
  1. LIDODERM [Suspect]
     Indication: NEURALGIA
     Dosage: 25- 50MG A DAY
     Dates: start: 20110407
  2. CYMBALTA [Suspect]
  3. LYRICA [Suspect]
     Indication: NEURALGIA
     Dosage: EVERY OTHER DAY, ORAL
     Route: 048
  4. OXYBUTYNIN [Suspect]
  5. ATENOLOL [Suspect]
  6. TOPROL-XL [Concomitant]
  7. CAPSAICIN [Suspect]

REACTIONS (12)
  - CONDITION AGGRAVATED [None]
  - ANXIETY [None]
  - PAIN IN EXTREMITY [None]
  - MYALGIA [None]
  - INSOMNIA [None]
  - DIZZINESS [None]
  - ATAXIA [None]
  - SOMNOLENCE [None]
  - ABDOMINAL PAIN UPPER [None]
  - GAIT DISTURBANCE [None]
  - FATIGUE [None]
  - DRUG INEFFECTIVE FOR UNAPPROVED INDICATION [None]
